FAERS Safety Report 9008486 (Version 1)
Quarter: 2013Q1

REPORT INFORMATION
  Report Type: Spontaneous
  Country: US (occurrence: US)
  Receive Date: 20130111
  Receipt Date: 20130111
  Transmission Date: 20140127
  Serious: No
  Sender: FDA-Public Use
  Company Number: US-PFIZER INC-2013010410

PATIENT
  Age: 74 Year
  Sex: Male
  Weight: 122.44 kg

DRUGS (1)
  1. ADVIL [Suspect]
     Indication: PAIN IN EXTREMITY
     Dosage: 200 MG, AS NEEDED
     Route: 048

REACTIONS (1)
  - Therapeutic response unexpected [Unknown]
